FAERS Safety Report 16437604 (Version 2)
Quarter: 2019Q3

REPORT INFORMATION
  Report Type: Spontaneous
  Country: CA (occurrence: CA)
  Receive Date: 20190615
  Receipt Date: 20190731
  Transmission Date: 20191004
  Serious: Yes (Other)
  Sender: FDA-Public Use
  Company Number: CA-AUROBINDO-AUR-APL-2014-00398

PATIENT

DRUGS (37)
  1. PANTOPRAZOLE [Suspect]
     Active Substance: PANTOPRAZOLE
     Indication: PRODUCT USED FOR UNKNOWN INDICATION
     Dosage: 40 MG,DAILY,
     Route: 065
  2. LABETALOL [Suspect]
     Active Substance: LABETALOL\LABETALOL HYDROCHLORIDE
     Indication: HYPERTENSION
     Dosage: 200 MG,TWO TIMES A DAY,
     Route: 065
  3. CALCIUM CARBONATE. [Suspect]
     Active Substance: CALCIUM CARBONATE
     Indication: PRODUCT USED FOR UNKNOWN INDICATION
     Dosage: UNK
     Route: 065
  4. DOVOBET [Suspect]
     Active Substance: BETAMETHASONE\CALCIPOTRIENE
     Indication: PSORIASIS
     Dosage: UNK
     Route: 065
  5. JANUMET [Concomitant]
     Active Substance: METFORMIN HYDROCHLORIDE\SITAGLIPTIN PHOSPHATE
     Indication: PRODUCT USED FOR UNKNOWN INDICATION
     Dosage: UNK
     Route: 065
  6. VALSARTAN. [Suspect]
     Active Substance: VALSARTAN
     Indication: HYPERTENSION
     Dosage: 320 MILLIGRAM, DAILY
     Route: 065
  7. PRAMIPEXOLE. [Suspect]
     Active Substance: PRAMIPEXOLE
     Indication: RESTLESS LEGS SYNDROME
     Dosage: 0.25 MILLIGRAM, ONCE A DAY
     Route: 065
  8. ACEBUTOLOL [Suspect]
     Active Substance: ACEBUTOLOL
     Indication: HYPERTENSION
     Dosage: UNK UNK,UNK,
     Route: 065
  9. FUROSEMIDE. [Suspect]
     Active Substance: FUROSEMIDE
     Indication: OEDEMA
     Dosage: 40 MILLIGRAM, DAILY
     Route: 065
  10. FUROSEMIDE. [Suspect]
     Active Substance: FUROSEMIDE
     Indication: OEDEMA PERIPHERAL
  11. LEVOTHYROXINE. [Suspect]
     Active Substance: LEVOTHYROXINE
     Indication: HYPOTHYROIDISM
     Dosage: 0.088 MILLIGRAM, ONCE A DAY
     Route: 065
  12. DOVONEX [Suspect]
     Active Substance: CALCIPOTRIENE
     Indication: PSORIASIS
     Dosage: UNK
     Route: 065
  13. METFORMIN TABLET [Suspect]
     Active Substance: METFORMIN HYDROCHLORIDE
     Indication: DIABETES MELLITUS
     Dosage: 500 MG,TWO TIMES A DAY,
     Route: 065
  14. TRAMADOL HYDROCHLORIDE. [Suspect]
     Active Substance: TRAMADOL HYDROCHLORIDE
     Indication: PAIN
     Dosage: UNK
     Route: 065
  15. HYDRALAZINE [Suspect]
     Active Substance: HYDRALAZINE HYDROCHLORIDE
     Indication: HYPERTENSION
     Dosage: UNK
     Route: 065
  16. JANUVIA [Suspect]
     Active Substance: SITAGLIPTIN PHOSPHATE
     Indication: DIABETES MELLITUS
     Dosage: 100 MILLIGRAM, ONCE A DAY
     Route: 065
  17. BETAMETHASONE. [Suspect]
     Active Substance: BETAMETHASONE
     Indication: PSORIASIS
     Dosage: UNK
     Route: 065
  18. FLUTICASONE PROPIONATE. [Suspect]
     Active Substance: FLUTICASONE PROPIONATE
     Indication: COUGH
     Dosage: 2 DOSAGE FORM, TWO TIMES A DAY
     Route: 065
  19. GLICLAZIDE [Suspect]
     Active Substance: GLICLAZIDE
     Dosage: 60 MILLIGRAM, DAILY
     Route: 065
  20. RANITIDINE. [Suspect]
     Active Substance: RANITIDINE
     Indication: DYSPEPSIA
     Dosage: 150 MILLIGRAM, AS REQUIRED
     Route: 065
  21. CALCIUM GLUCONATE. [Suspect]
     Active Substance: CALCIUM GLUCONATE
     Indication: OSTEOPOROSIS
     Dosage: UNK
     Route: 065
  22. ERGOCALCIFEROL. [Concomitant]
     Active Substance: ERGOCALCIFEROL
     Indication: OSTEOPOROSIS
     Dosage: 1000 DOSAGE FORM, UNK
     Route: 065
  23. VITAMIN D [Concomitant]
     Active Substance: VITAMIN D NOS
     Indication: PRODUCT USED FOR UNKNOWN INDICATION
     Dosage: UNK
     Route: 065
  24. AMLODIPINE [Suspect]
     Active Substance: AMLODIPINE BESYLATE
     Indication: HYPERTENSION
     Dosage: 10 MILLIGRAM, DAILY
     Route: 065
  25. RASILEZ [Suspect]
     Active Substance: ALISKIREN
     Indication: HYPERTENSION
     Dosage: 300 MILLIGRAM, DAILY
     Route: 065
  26. METHOCARBAMOL. [Suspect]
     Active Substance: METHOCARBAMOL
     Indication: PAIN
     Dosage: 400 MG,TWO TIMES A DAY,
     Route: 065
  27. ACETYLSALICYLIC ACID [Suspect]
     Active Substance: ASPIRIN
     Indication: CEREBROVASCULAR ACCIDENT
     Dosage: 81 MILLIGRAM, DAILY
     Route: 065
  28. SALBUTAMOL [Suspect]
     Active Substance: ALBUTEROL
     Indication: PRODUCT USED FOR UNKNOWN INDICATION
     Dosage: UNK
     Route: 065
  29. ACETAMINOPHEN. [Concomitant]
     Active Substance: ACETAMINOPHEN
     Indication: PAIN
     Dosage: 325 MILLIGRAM, 2 EVERY ONE DAY
     Route: 065
  30. GLICLAZIDE [Suspect]
     Active Substance: GLICLAZIDE
     Indication: DIABETES MELLITUS
     Dosage: 30 MG,TWO TIMES A DAY,
     Route: 065
  31. PLANTAGO AFRA [Concomitant]
     Active Substance: HERBALS
     Indication: CONSTIPATION
     Dosage: UNK
     Route: 065
  32. SIMVASTATIN TABLET [Suspect]
     Active Substance: SIMVASTATIN
     Indication: CEREBROVASCULAR ACCIDENT
     Dosage: 10 MILLIGRAM, DAILY
     Route: 065
  33. RISEDRONATE [Suspect]
     Active Substance: RISEDRONATE SODIUM
     Indication: OSTEOPOROSIS
     Dosage: 35 MILLIGRAM, EVERY WEEK
     Route: 065
  34. SITAGLIPTIN [Suspect]
     Active Substance: SITAGLIPTIN
     Indication: DIABETES MELLITUS
     Dosage: 100 MILLIGRAM, DAILY
     Route: 065
  35. ALLOPURINOL. [Suspect]
     Active Substance: ALLOPURINOL
     Indication: GOUT
     Dosage: 250 MILLIGRAM, DAILY
     Route: 065
  36. CYANOCOBALAMIN. [Suspect]
     Active Substance: CYANOCOBALAMIN
     Indication: PRODUCT USED FOR UNKNOWN INDICATION
     Dosage: UNK,ONCE A DAY
     Route: 065
  37. PSYLLIUM [Concomitant]
     Active Substance: PLANTAGO SEED
     Indication: PRODUCT USED FOR UNKNOWN INDICATION
     Dosage: UNK,TWO TIMES A DAY
     Route: 065

REACTIONS (14)
  - Contusion [Unknown]
  - Amnesia [Unknown]
  - Cognitive disorder [Unknown]
  - Multiple drug therapy [Unknown]
  - Drug ineffective [Unknown]
  - Hypertension [Unknown]
  - Depressed mood [Unknown]
  - Mobility decreased [Unknown]
  - Exercise tolerance decreased [Unknown]
  - Oedema peripheral [Unknown]
  - Blood pressure inadequately controlled [Unknown]
  - Diabetes mellitus inadequate control [Unknown]
  - Treatment noncompliance [Unknown]
  - Medication error [Unknown]
